FAERS Safety Report 13029888 (Version 3)
Quarter: 2017Q1

REPORT INFORMATION
  Report Type: Report from Study
  Country: CA (occurrence: CA)
  Receive Date: 20161215
  Receipt Date: 20170213
  Transmission Date: 20170428
  Serious: Yes (Death, Other)
  Sender: FDA-Public Use
  Company Number: CA-JNJFOC-20161017616

PATIENT
  Age: 70 Year
  Sex: Male
  Weight: 84.8 kg

DRUGS (1)
  1. DARZALEX [Suspect]
     Active Substance: DARATUMUMAB
     Indication: PLASMA CELL MYELOMA
     Route: 042
     Dates: start: 20161011, end: 20161129

REACTIONS (10)
  - Death [Fatal]
  - Neutrophil count decreased [Unknown]
  - Fatigue [Unknown]
  - Hepatic function abnormal [Unknown]
  - Haemoglobin decreased [Unknown]
  - Muscle spasms [Recovering/Resolving]
  - Drug ineffective [Fatal]
  - Renal impairment [Unknown]
  - Platelet count decreased [Unknown]
  - Nausea [Recovering/Resolving]

NARRATIVE: CASE EVENT DATE: 20161012
